FAERS Safety Report 7418510-1 (Version None)
Quarter: 2011Q2

REPORT INFORMATION
  Report Type: 
  Country: None (occurrence: None)
  Receive Date: 20110415
  Receipt Date: 20110404
  Transmission Date: 20111010
  Serious: Yes (Death, Hospitalization)
  Sender: FDA-Public Use
  Company Number: JP-BAYER-2011-004094

PATIENT
  Age: 67 Year
  Sex: Male
  Weight: 70 kg

DRUGS (8)
  1. OXYGEN [Concomitant]
     Dosage: UNK
     Route: 055
     Dates: start: 20110209
  2. NEXAVAR [Suspect]
     Indication: HEPATIC NEOPLASM MALIGNANT
     Dosage: 400 MG, BID
     Route: 048
     Dates: start: 20101215, end: 20110106
  3. DORMICUM [Concomitant]
     Dosage: UNK
     Route: 042
     Dates: start: 20110203
  4. DUROTEP [Concomitant]
     Dosage: UNK
     Route: 062
     Dates: start: 20110205
  5. PABLON [Suspect]
     Indication: NASOPHARYNGITIS
     Dosage: UNK
     Route: 048
     Dates: start: 20110104, end: 20110106
  6. COUGH AND COLD PREPARATIONS [Concomitant]
     Indication: NASOPHARYNGITIS
     Route: 048
  7. SERENACE [Concomitant]
     Dosage: UNK
     Route: 042
     Dates: start: 20110130
  8. ATARAX [Concomitant]
     Dosage: UNK
     Route: 042
     Dates: start: 20110130

REACTIONS (3)
  - ACUTE HEPATIC FAILURE [None]
  - URINE OUTPUT DECREASED [None]
  - RENAL IMPAIRMENT [None]
